APPROVED DRUG PRODUCT: LEVONORGESTREL AND ETHINYL ESTRADIOL
Active Ingredient: ETHINYL ESTRADIOL; LEVONORGESTREL
Strength: 0.03MG;0.15MG
Dosage Form/Route: TABLET;ORAL
Application: A091440 | Product #001 | TE Code: AB
Applicant: LUPIN LTD
Approved: Oct 23, 2012 | RLD: No | RS: No | Type: RX